FAERS Safety Report 21419150 (Version 1)
Quarter: 2022Q4

REPORT INFORMATION
  Report Type: Spontaneous
  Country: DE (occurrence: DE)
  Receive Date: 20221006
  Receipt Date: 20221006
  Transmission Date: 20230113
  Serious: Yes (Hospitalization)
  Sender: FDA-Public Use
  Company Number: DE-ADRED-08148-01

PATIENT
  Age: 88 Year
  Sex: Female
  Weight: 63.5 kg

DRUGS (11)
  1. HYDROCHLOROTHIAZIDE\RAMIPRIL [Interacting]
     Active Substance: HYDROCHLOROTHIAZIDE\RAMIPRIL
     Indication: Product used for unknown indication
     Dosage: 1 MILLIGRAM DAILY; 25|5 MG, 1-0-0-0,
     Route: 065
  2. PENICILLIN V [Interacting]
     Active Substance: PENICILLIN V
     Indication: Product used for unknown indication
     Dosage: 3 DOSAGE FORMS DAILY; 1-1-1-0
     Route: 065
  3. PIRETANIDE [Interacting]
     Active Substance: PIRETANIDE
     Indication: Product used for unknown indication
     Dosage: 6 MILLIGRAM DAILY; 6 MG, 1-0-0-0
     Route: 065
  4. FOLIC ACID [Concomitant]
     Active Substance: FOLIC ACID
     Indication: Product used for unknown indication
     Dosage: 5 MILLIGRAM DAILY; 5 MG, 1-0-0-0,
  5. Cyanocobalamin (Vitamin B12) [Concomitant]
     Indication: Product used for unknown indication
     Dosage: 1 MILLIGRAM DAILY; 1 MG, 1-0-0-0, DRAGEES
  6. CHOLECALCIFEROL [Concomitant]
     Active Substance: CHOLECALCIFEROL
     Indication: Product used for unknown indication
     Dosage: 20000 IE, NK,
  7. PANTOPRAZOLE [Concomitant]
     Active Substance: PANTOPRAZOLE
     Indication: Product used for unknown indication
     Dosage: 40 MILLIGRAM DAILY; 40 MG, 1-0-0-0,
  8. BISOPROLOL [Concomitant]
     Active Substance: BISOPROLOL
     Indication: Product used for unknown indication
     Dosage: 5 MILLIGRAM DAILY; 5 MG, 1-0-0-0,
  9. PREDNISOLONE [Concomitant]
     Active Substance: PREDNISOLONE
     Indication: Product used for unknown indication
     Dosage: 2 MILLIGRAM DAILY; 2 MG, 1-0-0-0,
  10. COLCHICINE [Concomitant]
     Active Substance: COLCHICINE
     Indication: Product used for unknown indication
     Dosage: .5 MILLIGRAM DAILY; 0.5 MG, 1-0-0-0,
  11. APIXABAN [Concomitant]
     Active Substance: APIXABAN
     Indication: Product used for unknown indication
     Dosage: 2.5 MILLIGRAM DAILY; 2.5 MG, 1-0-0-0,

REACTIONS (7)
  - Erysipelas [Unknown]
  - Necrosis [Unknown]
  - Pain [Unknown]
  - Musculoskeletal pain [Unknown]
  - Product monitoring error [Unknown]
  - Product prescribing error [Unknown]
  - Labelled drug-drug interaction medication error [Unknown]

NARRATIVE: CASE EVENT DATE: 20210903
